FAERS Safety Report 24523762 (Version 1)
Quarter: 2024Q4

REPORT INFORMATION
  Report Type: Spontaneous
  Country: CN (occurrence: CN)
  Receive Date: 20241018
  Receipt Date: 20241018
  Transmission Date: 20250115
  Serious: Yes (Hospitalization, Other)
  Sender: NOVARTIS
  Company Number: CN-002147023-NVSC2024CN201542

PATIENT
  Age: 84 Year
  Sex: Male
  Weight: 55 kg

DRUGS (2)
  1. ENTRESTO [Suspect]
     Active Substance: SACUBITRIL\VALSARTAN
     Indication: Hypertension
     Dosage: 0.050 G, BID
     Route: 048
     Dates: start: 20240819, end: 20240820
  2. METOPROLOL [Concomitant]
     Active Substance: METOPROLOL
     Indication: Heart rate increased
     Dosage: 47.500 MG, QD
     Route: 048
     Dates: start: 20240819, end: 20240820

REACTIONS (13)
  - Blood pressure decreased [Unknown]
  - Cerebral infarction [Unknown]
  - Chest discomfort [Recovering/Resolving]
  - Palpitations [Unknown]
  - Dizziness [Recovered/Resolved]
  - Asthenia [Unknown]
  - Chest pain [Recovered/Resolved]
  - Decreased appetite [Unknown]
  - Shock [Unknown]
  - Arrhythmia [Unknown]
  - Heart rate increased [Recovered/Resolved]
  - Tremor [Unknown]
  - Hypersensitivity [Unknown]

NARRATIVE: CASE EVENT DATE: 20240820
